FAERS Safety Report 8221459-8 (Version None)
Quarter: 2012Q1

REPORT INFORMATION
  Report Type: 
  Country: None (occurrence: None)
  Receive Date: 20120320
  Receipt Date: 20120315
  Transmission Date: 20120608
  Serious: Yes (Hospitalization, Other)
  Sender: FDA-Public Use
  Company Number: PR-ABBOTT-12P-131-0894854-00

PATIENT
  Sex: Male
  Weight: 69.916 kg

DRUGS (5)
  1. HUMIRA [Suspect]
     Route: 058
     Dates: start: 20120102, end: 20120103
  2. HUMIRA [Suspect]
     Indication: CROHN'S DISEASE
     Route: 058
     Dates: start: 20111205, end: 20111205
  3. HUMIRA [Suspect]
     Route: 058
     Dates: start: 20120210
  4. HUMIRA [Suspect]
     Route: 058
     Dates: start: 20111219, end: 20111219
  5. ASACOL [Concomitant]
     Indication: CROHN'S DISEASE
     Route: 048
     Dates: start: 20111101, end: 20120102

REACTIONS (1)
  - ILEITIS [None]
